FAERS Safety Report 6404206-1 (Version None)
Quarter: 2009Q4

REPORT INFORMATION
  Report Type: 
  Country: None (occurrence: None)
  Receive Date: 20091016
  Receipt Date: 20091005
  Transmission Date: 20100525
  Serious: Yes (Other)
  Sender: FDA-Public Use
  Company Number: DE-PFIZER INC-2009278644

PATIENT
  Age: 65 Year

DRUGS (1)
  1. LYRICA [Suspect]
     Indication: NEURILEMMOMA
     Route: 048

REACTIONS (4)
  - ALTERED STATE OF CONSCIOUSNESS [None]
  - AMNESIA [None]
  - ANTICHOLINERGIC SYNDROME [None]
  - HALLUCINATION [None]
